FAERS Safety Report 18870710 (Version 1)
Quarter: 2021Q1

REPORT INFORMATION
  Report Type: Spontaneous
  Country: US (occurrence: US)
  Receive Date: 20210210
  Receipt Date: 20210210
  Transmission Date: 20210420
  Serious: Yes (Death, Hospitalization, Other)
  Sender: FDA-Public Use
  Company Number: US-AUROBINDO-AUR-APL-2021-004578

PATIENT
  Age: 25 Year
  Sex: Female

DRUGS (1)
  1. HYDROMORPHONE HYDROCHLORIDE TABLETS [Suspect]
     Active Substance: HYDROMORPHONE HYDROCHLORIDE
     Indication: PRODUCT USED FOR UNKNOWN INDICATION
     Dosage: UNK
     Route: 042

REACTIONS (13)
  - Embolism [Fatal]
  - Off label use [Recovered/Resolved]
  - Hypersplenism [Fatal]
  - Pulmonary embolism [Fatal]
  - Toxicity to various agents [Recovered/Resolved]
  - Ascites [Fatal]
  - Drug dependence [Recovered/Resolved]
  - Drug abuse [Recovered/Resolved]
  - Metabolic acidosis [Recovered/Resolved]
  - Pericardial effusion [Fatal]
  - Pulmonary congestion [Fatal]
  - Cardiac arrest [Fatal]
  - Cardiomegaly [Fatal]
